FAERS Safety Report 5598814-8 (Version None)
Quarter: 2008Q1

REPORT INFORMATION
  Report Type: 
  Country: None (occurrence: None)
  Receive Date: 20080122
  Receipt Date: 20080114
  Transmission Date: 20080703
  Serious: Yes (Death)
  Sender: FDA-Public Use
  Company Number: US-ELI_LILLY_AND_COMPANY-US200710004030

PATIENT
  Age: 71 Year
  Sex: Female
  Weight: 66.213 kg

DRUGS (7)
  1. FORTEO [Suspect]
     Indication: OSTEOPOROSIS
     Dosage: UNK, UNK
     Dates: start: 20070411
  2. PREVACID [Concomitant]
  3. DARVOCET [Concomitant]
  4. CLONIDINE [Concomitant]
  5. COZAAR [Concomitant]
  6. SIMVASTATIN [Concomitant]
  7. ASPIRIN [Concomitant]
     Dosage: 81 MG, UNK

REACTIONS (1)
  - CEREBRAL HAEMORRHAGE [None]
